FAERS Safety Report 22084494 (Version 1)
Quarter: 2023Q1

REPORT INFORMATION
  Report Type: Spontaneous
  Country: US (occurrence: None)
  Receive Date: 20230310
  Receipt Date: 20230310
  Transmission Date: 20230418
  Serious: No
  Sender: FDA-Public Use
  Company Number: US-Merck Healthcare KGaA-9388711

PATIENT
  Sex: Female
  Weight: 79 kg

DRUGS (1)
  1. MAVENCLAD [Suspect]
     Active Substance: CLADRIBINE
     Indication: Multiple sclerosis
     Dosage: MAVENCLAD TABLET PAK 10 MG (X7)
     Route: 048

REACTIONS (1)
  - Fatigue [Unknown]
